FAERS Safety Report 25507953 (Version 1)
Quarter: 2025Q3

REPORT INFORMATION
  Report Type: Spontaneous
  Country: EU (occurrence: EU)
  Receive Date: 20250703
  Receipt Date: 20250703
  Transmission Date: 20251021
  Serious: Yes (Life-Threatening, Hospitalization, Other)
  Sender: MERCK SHARP & DOHME LLC
  Company Number: None

PATIENT
  Age: 73 Year
  Sex: Female

DRUGS (1)
  1. KEYTRUDA [Suspect]
     Active Substance: PEMBROLIZUMAB
     Indication: Bladder cancer stage IV
     Route: 042
     Dates: start: 20250507, end: 20250528

REACTIONS (2)
  - Hypoxia [Recovering/Resolving]
  - Autoimmune lung disease [Recovering/Resolving]

NARRATIVE: CASE EVENT DATE: 20250604
